FAERS Safety Report 4337531-9 (Version None)
Quarter: 2004Q2

REPORT INFORMATION
  Report Type: 
  Country: None (occurrence: None)
  Receive Date: 20040413
  Receipt Date: 20040223
  Transmission Date: 20050107
  Serious: Yes (Other)
  Sender: FDA-Public Use
  Company Number: JP-GLAXOSMITHKLINE-B0324521A

PATIENT
  Age: 74 Year
  Sex: Male

DRUGS (10)
  1. ZOVIRAX [Suspect]
     Indication: HERPES ZOSTER
     Dosage: 3200MG PER DAY
     Route: 048
     Dates: start: 20040214, end: 20040216
  2. VALTREX [Suspect]
     Indication: HERPES ZOSTER
     Dosage: 3000MG PER DAY
     Route: 048
     Dates: start: 20040217, end: 20040217
  3. MAGNESIUM OXIDE [Concomitant]
     Route: 065
  4. ENTOMOL [Concomitant]
     Route: 048
  5. LAXOBERON [Concomitant]
     Route: 048
  6. GASMOTIN [Concomitant]
     Route: 048
  7. GASCON [Concomitant]
     Route: 048
  8. TAGAMET [Concomitant]
     Route: 065
  9. BASEN [Concomitant]
     Route: 048
  10. RANITIDINE HYDROCHLORIDE [Concomitant]
     Indication: GASTRITIS
     Dosage: 300MG PER DAY

REACTIONS (3)
  - DEPRESSED LEVEL OF CONSCIOUSNESS [None]
  - ENCEPHALITIS [None]
  - TREMOR [None]
